FAERS Safety Report 14325457 (Version 2)
Quarter: 2018Q1

REPORT INFORMATION
  Report Type: Report from Study
  Country: US (occurrence: US)
  Receive Date: 20171226
  Receipt Date: 20180105
  Transmission Date: 20180509
  Serious: No
  Sender: FDA-Public Use
  Company Number: US-JAZZ-2017-US-017087

PATIENT
  Sex: Female

DRUGS (3)
  1. XYREM [Suspect]
     Active Substance: SODIUM OXYBATE
     Indication: FIBROMYALGIA
     Dosage: 3 G, BID
     Route: 048
     Dates: start: 200608, end: 200610
  2. XYREM [Suspect]
     Active Substance: SODIUM OXYBATE
     Dosage: 2.25 G, BID
     Route: 048
     Dates: start: 201105
  3. XYREM [Suspect]
     Active Substance: SODIUM OXYBATE
     Dosage: DOSE ADJUSTMENT
     Route: 048
     Dates: start: 200610, end: 201105

REACTIONS (5)
  - Liver disorder [Recovered/Resolved]
  - Pre-existing condition improved [Unknown]
  - Anxiety [Recovered/Resolved]
  - Therapeutic response unexpected [Unknown]
  - Blood pressure increased [Recovered/Resolved]

NARRATIVE: CASE EVENT DATE: 2006
